FAERS Safety Report 10110052 (Version 1)
Quarter: 2014Q2

REPORT INFORMATION
  Report Type: Spontaneous
  Country: US (occurrence: None)
  Receive Date: 20140423
  Receipt Date: 20140423
  Transmission Date: 20141212
  Serious: Yes (Other)
  Sender: FDA-Public Use
  Company Number: FK201401374

PATIENT
  Age: 58 Year
  Sex: Female

DRUGS (2)
  1. LIDOCAINE (MANUFACTURER UNKNOWN) (LIDOCAINE) (LIDOCAINE) [Suspect]
     Indication: GENERAL ANAESTHESIA
     Route: 042
  2. BENZOCAINE (BENZOCAINE) (BENZOCAINE) [Suspect]
     Indication: TOOTHACHE
     Dosage: MULTIPLE APPLICATIONS

REACTIONS (4)
  - Cyanosis [None]
  - Mental status changes [None]
  - Respiratory failure [None]
  - Toothache [None]
